FAERS Safety Report 9744667 (Version 1)
Quarter: 2013Q4

REPORT INFORMATION
  Report Type: Spontaneous
  Country: US (occurrence: US)
  Receive Date: 20131210
  Receipt Date: 20131210
  Transmission Date: 20140711
  Serious: No
  Sender: FDA-Public Use
  Company Number: US-009507513-1312USA000087

PATIENT
  Age: 21 Year
  Sex: Female

DRUGS (2)
  1. PEGINTRON [Suspect]
     Dosage: 120 MICROGRAM, QW
     Route: 058
     Dates: start: 201308
  2. RIBASPHERE [Suspect]

REACTIONS (2)
  - Injection site erythema [Unknown]
  - Injection site pain [Unknown]
